FAERS Safety Report 4353784-5 (Version None)
Quarter: 2004Q2

REPORT INFORMATION
  Report Type: 
  Country: None (occurrence: None)
  Receive Date: 20040430
  Receipt Date: 20031117
  Transmission Date: 20050107
  Serious: Yes (Other)
  Sender: FDA-Public Use
  Company Number: US044144

PATIENT
  Age: 78 Year
  Sex: Female
  Weight: 44 kg

DRUGS (6)
  1. EPOGEN [Suspect]
     Indication: DIALYSIS
     Dosage: 36000 U 3 TIMES/WK, IV
     Route: 042
     Dates: start: 20010111, end: 20031030
  2. DEXTROPROPOXYPHENE NAPSILATE W/ACETOMINOPHEN [Concomitant]
  3. GABAPENTIN [Concomitant]
  4. QUININE SULFATE [Concomitant]
  5. AMLODIPINE [Concomitant]
  6. PHOSLO [Concomitant]

REACTIONS (2)
  - MYELODYSPLASTIC SYNDROME [None]
  - THERAPEUTIC RESPONSE DECREASED [None]
